FAERS Safety Report 17690794 (Version 1)
Quarter: 2020Q2

REPORT INFORMATION
  Report Type: Spontaneous
  Country: ES (occurrence: ES)
  Receive Date: 20200422
  Receipt Date: 20200422
  Transmission Date: 20200714
  Serious: Yes (Other)
  Sender: FDA-Public Use
  Company Number: ES-TEVA-2020-ES-1226002

PATIENT
  Age: 73 Year
  Sex: Male

DRUGS (8)
  1. AZITROMICINA (7019A) [Suspect]
     Active Substance: AZITHROMYCIN
     Indication: PNEUMONIA
  2. CEFTRIAXONA (501A) [Suspect]
     Active Substance: CEFTRIAXONE
     Indication: CORONAVIRUS INFECTION
     Dosage: 2 GRAM DAILY; 2GR/24H
     Route: 042
     Dates: start: 20200319, end: 20200324
  3. CEFTRIAXONA (501A) [Suspect]
     Active Substance: CEFTRIAXONE
     Indication: PNEUMONIA
  4. AZITROMICINA (7019A) [Suspect]
     Active Substance: AZITHROMYCIN
     Indication: CORONAVIRUS INFECTION
     Dosage: 500 MILLIGRAM DAILY; 500 MG/24H
     Route: 048
     Dates: start: 20200324, end: 20200330
  5. TOCILIZUMAB (8289A) [Suspect]
     Active Substance: TOCILIZUMAB
     Indication: PNEUMONIA
  6. HIDROXICLOROQUINA (2143A) [Suspect]
     Active Substance: HYDROXYCHLOROQUINE
     Indication: PNEUMONIA
  7. HIDROXICLOROQUINA (2143A) [Suspect]
     Active Substance: HYDROXYCHLOROQUINE
     Indication: CORONAVIRUS INFECTION
     Dosage: 200 MILLIGRAM DAILY; 200 MG/24H
     Route: 048
     Dates: start: 20200319, end: 20200326
  8. TOCILIZUMAB (8289A) [Suspect]
     Active Substance: TOCILIZUMAB
     Indication: CORONAVIRUS INFECTION
     Dosage: 600 MILLIGRAM DAILY; 600MG/24H
     Route: 042
     Dates: start: 20200323, end: 20200324

REACTIONS (1)
  - Hepatitis [Recovering/Resolving]

NARRATIVE: CASE EVENT DATE: 20200325
